FAERS Safety Report 11219200 (Version 1)
Quarter: 2015Q2

REPORT INFORMATION
  Report Type: Spontaneous
  Country: GB (occurrence: GB)
  Receive Date: 20150625
  Receipt Date: 20150625
  Transmission Date: 20150821
  Serious: Yes (Hospitalization)
  Sender: FDA-Public Use
  Company Number: GB-ABBVIE-15P-167-1415665-00

PATIENT
  Age: 54 Year
  Sex: Female
  Weight: 86 kg

DRUGS (29)
  1. SERTRALINE [Concomitant]
     Active Substance: SERTRALINE HYDROCHLORIDE
     Indication: DEPRESSION
     Dates: start: 20140813
  2. ONDANSETRON [Concomitant]
     Active Substance: ONDANSETRON
     Indication: PRODUCT USED FOR UNKNOWN INDICATION
     Dates: start: 20140818
  3. BECONASE AQ [Concomitant]
     Active Substance: BECLOMETHASONE DIPROPIONATE MONOHYDRATE
     Indication: SEASONAL ALLERGY
     Dosage: DAILY DOSE : 4 AD; TO EACH NOSTRIL
     Dates: start: 20140813
  4. LORATADINE. [Concomitant]
     Active Substance: LORATADINE
     Indication: SEASONAL ALLERGY
     Dosage: 10 MG AS REQUIRED
     Dates: start: 20140813
  5. ESOMEPRAZOLE [Concomitant]
     Active Substance: ESOMEPRAZOLE
     Indication: PRODUCT USED FOR UNKNOWN INDICATION
     Dates: start: 20140813
  6. SODIUM CHLORIDE. [Concomitant]
     Active Substance: SODIUM CHLORIDE
     Indication: PRODUCT USED FOR UNKNOWN INDICATION
     Route: 055
     Dates: start: 20140813
  7. MACROGOL [Concomitant]
     Active Substance: POLYETHYLENE GLYCOLS
     Indication: PRODUCT USED FOR UNKNOWN INDICATION
     Dosage: SUGAR FREE (DAILY DOSE: 2 AD)
     Dates: start: 20140115
  8. SALIVA [Concomitant]
     Indication: DRY MOUTH
     Dosage: USE AS DIRECTED. SPRAY
     Dates: start: 20140813
  9. NAVISPARE [Concomitant]
     Indication: HYPERALDOSTERONISM
     Dates: start: 20140813
  10. PREMARIN [Concomitant]
     Active Substance: ESTROGENS, CONJUGATED
     Indication: HORMONE REPLACEMENT THERAPY
     Dates: start: 20140813
  11. SYMBICORT [Concomitant]
     Active Substance: BUDESONIDE\FORMOTEROL FUMARATE DIHYDRATE
     Indication: ASTHMA
     Dosage: DAILY DOSE: 8 AD; AND IN THE AFTERNOON IF NEEDED
     Dates: start: 20140813
  12. TOPIRAMATE. [Concomitant]
     Active Substance: TOPIRAMATE
     Indication: PRODUCT USED FOR UNKNOWN INDICATION
     Dates: start: 20150528
  13. CLARITHROMYCIN. [Interacting]
     Active Substance: CLARITHROMYCIN
     Dosage: HALVED ON 16TH APRIL 2015; DAILY DOSE: 250MG
     Route: 048
     Dates: start: 20150416
  14. PREDNISOLONE. [Interacting]
     Active Substance: PREDNISOLONE
     Indication: ASTHMA
     Dosage: 9 MG. ORIGINAL DOSE PRESCRIBED WAS REDUCED.
     Route: 065
     Dates: start: 201410
  15. ALENDRONIC ACID [Concomitant]
     Active Substance: ALENDRONIC ACID
     Indication: PRODUCT USED FOR UNKNOWN INDICATION
     Dates: start: 20150528
  16. HYDROXYCHLOROQUINE [Concomitant]
     Active Substance: HYDROXYCHLOROQUINE
     Indication: ARTHRITIS
     Dates: start: 20140813
  17. HYDROXOCOBALAMIN [Concomitant]
     Active Substance: HYDROXOCOBALAMIN
     Indication: PRODUCT USED FOR UNKNOWN INDICATION
     Dates: start: 20140813
  18. SANDO K [Concomitant]
     Indication: PRODUCT USED FOR UNKNOWN INDICATION
     Dates: start: 20150528
  19. MEPTAZINOL [Concomitant]
     Indication: PRODUCT USED FOR UNKNOWN INDICATION
     Dates: start: 20150528
  20. PARACETAMOL [Concomitant]
     Active Substance: ACETAMINOPHEN
     Indication: PAIN
     Dosage: TAKE ONE OR TWO TABLETS FOUR TIMES A DAY (NOT EVERYDAY) WHEN REQUIRED
     Dates: start: 20140813
  21. TIOTROPIUM BROMIDE [Concomitant]
     Active Substance: TIOTROPIUM BROMIDE
     Indication: ASTHMA
     Route: 055
     Dates: start: 20140813
  22. ADCAL D3 [Concomitant]
     Active Substance: CALCIUM CARBONATE\CHOLECALCIFEROL
     Indication: PRODUCT USED FOR UNKNOWN INDICATION
     Dates: start: 20150528
  23. ASPIRIN. [Concomitant]
     Active Substance: ASPIRIN
     Indication: PRODUCT USED FOR UNKNOWN INDICATION
     Dates: start: 20150528
  24. HYPROMELLOSE [Concomitant]
     Active Substance: HYPROMELLOSES
     Indication: DRY EYE
     Dosage: 1 DROP AS REQUIRED. AS NEEDED TO EACH EYE. FORM: EYE DROPS
     Dates: start: 20140813
  25. FOLIC ACID. [Concomitant]
     Active Substance: FOLIC ACID
     Indication: PRODUCT USED FOR UNKNOWN INDICATION
     Dates: start: 20140813
  26. CLARITHROMYCIN. [Suspect]
     Active Substance: CLARITHROMYCIN
     Indication: ASTHMA
     Dosage: DOSE DECREASED; DAILY DOSE: 500MG
     Route: 048
     Dates: start: 201410, end: 20150416
  27. VENTOLIN [Concomitant]
     Active Substance: ALBUTEROL SULFATE
     Indication: ASTHMA
     Dosage: INHALE 1 DOSE 3-4 TIMES A DAY AS REQUIRED
     Dates: start: 20140813
  28. VENTOLIN [Concomitant]
     Active Substance: ALBUTEROL SULFATE
     Dosage: 2 PUFFS WHEN REQUIRED
     Route: 055
     Dates: start: 20140813
  29. SENNA [Concomitant]
     Active Substance: SENNA LEAF\SENNOSIDES\SENNOSIDES A AND B
     Indication: PRODUCT USED FOR UNKNOWN INDICATION
     Dosage: 1 OR 2 AT NIGHT WHEN REQUIRED
     Dates: start: 20140813

REACTIONS (12)
  - Swelling face [Recovered/Resolved]
  - Headache [Not Recovered/Not Resolved]
  - Diplopia [Not Recovered/Not Resolved]
  - Temporal arteritis [Unknown]
  - Drug interaction [Unknown]
  - Asthenia [Recovered/Resolved]
  - Abdominal distension [Recovered/Resolved]
  - Skin hypertrophy [Recovered/Resolved]
  - Transient ischaemic attack [Unknown]
  - Status asthmaticus [Unknown]
  - Acidosis [Recovered/Resolved]
  - Eye swelling [Recovered/Resolved]
